FAERS Safety Report 5578817-X (Version None)
Quarter: 2008Q1

REPORT INFORMATION
  Report Type: 
  Country: None (occurrence: None)
  Receive Date: 20080102
  Receipt Date: 20071227
  Transmission Date: 20080703
  Serious: Yes (Life-Threatening, Hospitalization)
  Sender: FDA-Public Use
  Company Number: US-JNJFOC-20071109564

PATIENT
  Sex: Female
  Weight: 14.06 kg

DRUGS (1)
  1. INVEGA [Suspect]
     Indication: DRUG USE FOR UNKNOWN INDICATION
     Route: 048

REACTIONS (5)
  - ACCIDENTAL DRUG INTAKE BY CHILD [None]
  - ACCIDENTAL OVERDOSE [None]
  - BLOOD PRESSURE FLUCTUATION [None]
  - FAILURE OF CHILD RESISTANT MECHANISM FOR PHARMACEUTICAL PRODUCT [None]
  - HEART RATE IRREGULAR [None]
